APPROVED DRUG PRODUCT: PRE-OP
Active Ingredient: HEXACHLOROPHENE
Strength: 480MG
Dosage Form/Route: SPONGE;TOPICAL
Application: N017433 | Product #001 | TE Code: AT
Applicant: DAVIS AND GECK DIV AMERICAN CYANAMID CO
Approved: Approved Prior to Jan 1, 1982 | RLD: Yes | RS: Yes | Type: RX